FAERS Safety Report 5128972-0 (Version None)
Quarter: 2006Q4

REPORT INFORMATION
  Report Type: 
  Country: None (occurrence: None)
  Receive Date: 20061016
  Receipt Date: 20061016
  Transmission Date: 20070319
  Serious: Yes (Other)
  Sender: FDA-Public Use
  Company Number: None

PATIENT
  Age: 57 Year
  Sex: Male
  Weight: 147 kg

DRUGS (3)
  1. CIPRO [Suspect]
     Indication: PNEUMONIA
     Dosage: 400MG Q8H IV
     Route: 042
     Dates: start: 20060423, end: 20060504
  2. CIPRO [Suspect]
     Indication: PNEUMONIA
     Dosage: 400MG Q24H IV
     Route: 042
     Dates: start: 20060505, end: 20060515
  3. CEFEPIME [Concomitant]

REACTIONS (3)
  - DYSKINESIA [None]
  - RENAL IMPAIRMENT [None]
  - TARDIVE DYSKINESIA [None]
